FAERS Safety Report 10347045 (Version 1)
Quarter: 2014Q3

REPORT INFORMATION
  Report Type: Spontaneous
  Country: GB (occurrence: GB)
  Receive Date: 20140729
  Receipt Date: 20140729
  Transmission Date: 20150326
  Serious: Yes (Life-Threatening, Other)
  Sender: FDA-Public Use
  Company Number: GB-JNJFOC-20140710494

PATIENT

DRUGS (4)
  1. DOXORUBICIN [Suspect]
     Active Substance: DOXORUBICIN
     Indication: PLASMA CELL MYELOMA
     Dosage: ON DAYS 1 TO 4
     Route: 042
  2. GRANULOCYTE COLONY-STIMULATING FACTOR [Concomitant]
     Active Substance: GRANULOCYTE COLONY-STIMULATING FACTOR NOS
     Indication: PALLIATIVE CARE
     Route: 065
  3. DEXAMETHASONE. [Suspect]
     Active Substance: DEXAMETHASONE
     Indication: PLASMA CELL MYELOMA
     Dosage: ON DAYS 1 TO 4, 8 TO 11 AND 15 TO 18 DURING CYCLE 1 AND DAYS 1 TO 4 DURING CYCLES 2 TO 4
     Route: 048
  4. BORTEZOMIB [Suspect]
     Active Substance: BORTEZOMIB
     Indication: PLASMA CELL MYELOMA
     Dosage: ON DAYS 1, 4, 8 AND 11
     Route: 042

REACTIONS (9)
  - Neutropenia [Unknown]
  - Thrombocytopenia [Unknown]
  - Infection [Unknown]
  - Nausea [Unknown]
  - Diarrhoea [Unknown]
  - Peripheral sensory neuropathy [Unknown]
  - Peripheral motor neuropathy [Unknown]
  - Anaemia [Unknown]
  - Vomiting [Unknown]
